FAERS Safety Report 11988728 (Version 1)
Quarter: 2016Q1

REPORT INFORMATION
  Report Type: Report from Study
  Country: FR (occurrence: FR)
  Receive Date: 20160202
  Receipt Date: 20160202
  Transmission Date: 20160526
  Serious: Yes (Death)
  Sender: FDA-Public Use
  Company Number: FR-PFIZER INC-2016046498

PATIENT

DRUGS (3)
  1. VINCRISTINE [Suspect]
     Active Substance: VINCRISTINE
     Indication: NEUROBLASTOMA
     Dosage: 1.5 MG/M2, DAILY (ON DAYS 1 AND 5, FIRST CYCLE)
  2. DOXORUBICIN HCL [Suspect]
     Active Substance: DOXORUBICIN HYDROCHLORIDE
     Indication: NEUROBLASTOMA
     Dosage: 60 MG/M2, DAILY (ON DAY 5, FIRST CYCLE)
  3. CYCLOPHOSPHAMIDE. [Suspect]
     Active Substance: CYCLOPHOSPHAMIDE
     Indication: NEUROBLASTOMA
     Dosage: 300 MG/M2, DAILY (ON  DAYS 1 TO 5, FIRST CYCLE)
     Route: 042

REACTIONS (1)
  - Gastrointestinal haemorrhage [Fatal]
